FAERS Safety Report 6869191-7 (Version None)
Quarter: 2010Q3

REPORT INFORMATION
  Report Type: 
  Country: None (occurrence: None)
  Receive Date: 20100722
  Receipt Date: 20080909
  Transmission Date: 20110219
  Serious: No
  Sender: FDA-Public Use
  Company Number: US-PFIZER INC-2008057373

PATIENT
  Sex: Male
  Weight: 82.55 kg

DRUGS (10)
  1. CHANTIX [Suspect]
     Indication: SMOKING CESSATION THERAPY
  2. ZESTRIL [Concomitant]
  3. ACETYLSALICYLIC ACID [Concomitant]
  4. AMBIEN [Concomitant]
  5. CAMPRAL [Concomitant]
  6. ZOCOR [Concomitant]
  7. NEFAZODONE HCL [Concomitant]
  8. NEXIUM [Concomitant]
  9. FLEXERIL [Concomitant]
  10. ATIVAN [Concomitant]

REACTIONS (3)
  - AGITATION [None]
  - DEPRESSION [None]
  - SLEEP DISORDER [None]
